FAERS Safety Report 4368982-4 (Version None)
Quarter: 2004Q2

REPORT INFORMATION
  Report Type: 
  Country: None (occurrence: None)
  Receive Date: 20040527
  Receipt Date: 20040514
  Transmission Date: 20050107
  Serious: Yes (Congenital Anomaly)
  Sender: FDA-Public Use
  Company Number: 138106USA

PATIENT
  Age: 29 Year
  Sex: Female
  Weight: 75.7507 kg

DRUGS (4)
  1. COPAXONE [Suspect]
     Indication: MULTIPLE SCLEROSIS
     Dosage: 20 MILLIGRAM QD SUBCUTANEOUS
     Route: 058
     Dates: start: 20030215, end: 20030528
  2. COPAXONE [Suspect]
     Indication: MULTIPLE SCLEROSIS
     Dosage: 20 MILLIGRAM QD SUBCUTANEOUS
     Route: 058
     Dates: start: 20031001
  3. TYLENOL [Concomitant]
  4. PREDNISONE [Concomitant]

REACTIONS (10)
  - ABORTION INDUCED [None]
  - AMNIOCENTESIS ABNORMAL [None]
  - CONGENITAL INTESTINAL MALFORMATION [None]
  - FOETAL DISORDER [None]
  - HEART DISEASE CONGENITAL [None]
  - LIVER DISORDER [None]
  - MATERNAL DRUGS AFFECTING FOETUS [None]
  - TRISOMY 18 [None]
  - ULTRASOUND ANTENATAL SCREEN ABNORMAL [None]
  - WRIST DEFORMITY [None]
